FAERS Safety Report 17490400 (Version 1)
Quarter: 2020Q1

REPORT INFORMATION
  Report Type: Spontaneous
  Country: US (occurrence: US)
  Receive Date: 20200303
  Receipt Date: 20200303
  Transmission Date: 20200409
  Serious: Yes (Other)
  Sender: FDA-Public Use
  Company Number: US-AKORN PHARMACEUTICALS-2019AKN00531

PATIENT
  Age: 37 Year
  Sex: Male

DRUGS (4)
  1. MYORISAN [Suspect]
     Active Substance: ISOTRETINOIN
     Indication: ACNE
     Dosage: ^ALTERNATING 2-3 PILLS PER DAY^
     Route: 048
     Dates: start: 20181211, end: 20190117
  2. MYORISAN [Suspect]
     Active Substance: ISOTRETINOIN
     Dosage: 120 MG, 1X/DAY
     Route: 048
     Dates: start: 20190122, end: 2019
  3. FISH OIL [Concomitant]
     Active Substance: FISH OIL
  4. MYORISAN [Suspect]
     Active Substance: ISOTRETINOIN
     Dosage: 80 MG, 1X/DAY
     Route: 048
     Dates: start: 2019, end: 20190312

REACTIONS (4)
  - Blood triglycerides increased [Unknown]
  - Tendon pain [Unknown]
  - Plantar fasciitis [Unknown]
  - Pain in extremity [Unknown]

NARRATIVE: CASE EVENT DATE: 201902
